FAERS Safety Report 24466192 (Version 1)
Quarter: 2024Q4

REPORT INFORMATION
  Report Type: Report from Study
  Country: US (occurrence: US)
  Receive Date: 20241018
  Receipt Date: 20241018
  Transmission Date: 20250114
  Serious: No
  Sender: ROCHE
  Company Number: US-ROCHE-3543069

PATIENT
  Age: 20 Year
  Sex: Female

DRUGS (12)
  1. XOLAIR [Suspect]
     Active Substance: OMALIZUMAB
     Indication: Chronic sinusitis
     Route: 065
  2. XOLAIR [Suspect]
     Active Substance: OMALIZUMAB
     Indication: Nasal polyps
  3. XOLAIR [Suspect]
     Active Substance: OMALIZUMAB
     Indication: Asthma
  4. XOLAIR [Suspect]
     Active Substance: OMALIZUMAB
     Indication: Eczema
  5. XOLAIR [Suspect]
     Active Substance: OMALIZUMAB
     Indication: Urticaria
  6. XOLAIR [Suspect]
     Active Substance: OMALIZUMAB
     Indication: Food allergy
  7. DUPILUMAB [Suspect]
     Active Substance: DUPILUMAB
     Indication: Chronic sinusitis
     Dosage: STRENGTH: 300MG/2ML
     Route: 058
     Dates: start: 20240117
  8. DUPILUMAB [Suspect]
     Active Substance: DUPILUMAB
     Indication: Nasal polyps
  9. DUPILUMAB [Suspect]
     Active Substance: DUPILUMAB
     Indication: Asthma
  10. DUPILUMAB [Suspect]
     Active Substance: DUPILUMAB
     Indication: Eczema
  11. DUPILUMAB [Suspect]
     Active Substance: DUPILUMAB
     Indication: Urticaria
  12. DUPILUMAB [Suspect]
     Active Substance: DUPILUMAB
     Indication: Food allergy

REACTIONS (8)
  - Pruritus [Unknown]
  - Thermal burn [Recovered/Resolved]
  - Pain in extremity [Unknown]
  - Eye pruritus [Unknown]
  - Nasal congestion [Unknown]
  - Nasal obstruction [Unknown]
  - Anosmia [Unknown]
  - Pain [Unknown]

NARRATIVE: CASE EVENT DATE: 20240117
